FAERS Safety Report 8780639 (Version 2)
Quarter: 2012Q4

REPORT INFORMATION
  Report Type: 
  Country: US (occurrence: GB)
  Receive Date: 20120913
  Receipt Date: 20120921
  Transmission Date: 20130627
  Serious: Yes (Life-Threatening, Other)
  Sender: FDA-Public Use
  Company Number: US-MYLANLABS-2012S1018653

PATIENT
  Sex: Female

DRUGS (5)
  1. REMIFENTANIL [Suspect]
     Indication: ANALGESIC THERAPY
     Dosage: Dose unit:40
     Route: 042
  2. FENTANYL [Suspect]
     Indication: ANALGESIC THERAPY
     Dosage: Dose unit:2
     Route: 008
  3. RINGER LACTATE /01126301/ [Concomitant]
     Route: 042
  4. SYNTOCINON [Concomitant]
     Route: 042
  5. BUPIVACAINE [Concomitant]
     Route: 008

REACTIONS (8)
  - Toxicity to various agents [Recovered/Resolved]
  - Respiratory arrest [Recovered/Resolved]
  - Overdose [Recovered/Resolved]
  - Medical device pain [None]
  - Loss of consciousness [None]
  - Maternal exposure during delivery [None]
  - Cyanosis [None]
  - Device occlusion [None]
